FAERS Safety Report 7337194-4 (Version None)
Quarter: 2011Q1

REPORT INFORMATION
  Report Type: 
  Country: None (occurrence: None)
  Receive Date: 20110308
  Receipt Date: 20110228
  Transmission Date: 20110831
  Serious: Yes (Other)
  Sender: FDA-Public Use
  Company Number: US-PFIZER INC-2011046959

PATIENT
  Sex: Male
  Weight: 103 kg

DRUGS (1)
  1. TYGACIL [Suspect]
     Dosage: UNK

REACTIONS (1)
  - HYPERSENSITIVITY [None]
